FAERS Safety Report 6739798-6 (Version None)
Quarter: 2010Q2

REPORT INFORMATION
  Report Type: 
  Country: None (occurrence: None)
  Receive Date: 20100525
  Receipt Date: 20100511
  Transmission Date: 20101027
  Serious: Yes (Hospitalization)
  Sender: FDA-Public Use
  Company Number: PHHY2010GB31017

PATIENT
  Sex: Female

DRUGS (4)
  1. METOPROLOL [Suspect]
     Dosage: 25 MG, ONCE/SINGLE
     Route: 048
  2. AMIODARONE [Concomitant]
  3. BOSENTAN [Concomitant]
     Dosage: 62.5 MG, BID
  4. BOSENTAN [Concomitant]
     Dosage: 125 MG, BID

REACTIONS (8)
  - BLOOD PRESSURE DECREASED [None]
  - BRADYCARDIA [None]
  - CARDIAC ARREST [None]
  - ELECTROCARDIOGRAM T WAVE INVERSION [None]
  - HYPOXIA [None]
  - METABOLIC ACIDOSIS [None]
  - RESPIRATORY ALKALOSIS [None]
  - SUPRAVENTRICULAR TACHYCARDIA [None]
